FAERS Safety Report 6024461-X (Version None)
Quarter: 2008Q4

REPORT INFORMATION
  Report Type: 
  Country: None (occurrence: None)
  Receive Date: 20081231
  Receipt Date: 20081219
  Transmission Date: 20090506
  Serious: Yes (Hospitalization, Other)
  Sender: FDA-Public Use
  Company Number: PHHY2008CA32577

PATIENT
  Sex: Male

DRUGS (3)
  1. CLOZARIL [Suspect]
     Indication: SCHIZOPHRENIA
     Dosage: 475 MG DAILY
     Dates: start: 20061128
  2. CLOZARIL [Suspect]
     Dosage: UNK
     Dates: end: 20081027
  3. RIVOTRIL [Concomitant]
     Dosage: 0.5 MG PRN, 2 TABLETS DAILY

REACTIONS (5)
  - ANXIETY [None]
  - BIPOLAR DISORDER [None]
  - PSYCHOMOTOR RETARDATION [None]
  - SCHIZOPHRENIA [None]
  - TACHYCARDIA [None]
